FAERS Safety Report 8913386 (Version 1)
Quarter: 2012Q4

REPORT INFORMATION
  Report Type: Spontaneous
  Country: US (occurrence: None)
  Receive Date: 20121114
  Receipt Date: 20121114
  Transmission Date: 20130627
  Serious: Yes (Hospitalization)
  Sender: FDA-Public Use
  Company Number: 2012US0370

PATIENT
  Sex: Male

DRUGS (1)
  1. KINERET [Suspect]
     Indication: GOUT
     Dates: end: 20121026

REACTIONS (1)
  - Renal transplant [None]
